FAERS Safety Report 24183986 (Version 1)
Quarter: 2024Q3

REPORT INFORMATION
  Report Type: Spontaneous
  Country: US (occurrence: US)
  Receive Date: 20240807
  Receipt Date: 20240807
  Transmission Date: 20241016
  Serious: No
  Sender: SANOFI AVENTIS
  Company Number: US-SA-SAC20240209000244

PATIENT
  Sex: Male
  Weight: 44.17 kg

DRUGS (1)
  1. DUPIXENT [Suspect]
     Active Substance: DUPILUMAB
     Indication: Eosinophilic oesophagitis
     Dosage: 300 MG, QW
     Route: 058
     Dates: start: 20240404, end: 2024

REACTIONS (2)
  - Impaired quality of life [Unknown]
  - Limb operation [Unknown]

NARRATIVE: CASE EVENT DATE: 20240101
